FAERS Safety Report 12157777 (Version 1)
Quarter: 2016Q1

REPORT INFORMATION
  Report Type: Spontaneous
  Country: US (occurrence: US)
  Receive Date: 20160308
  Receipt Date: 20160308
  Transmission Date: 20160526
  Serious: No
  Sender: FDA-Public Use
  Company Number: US-JNJFOC-20141005267

PATIENT
  Age: 55 Year
  Sex: Male

DRUGS (50)
  1. OXYCODONE [Concomitant]
     Active Substance: OXYCODONE
     Indication: PAIN
     Dates: start: 2009
  2. LEXAPRO [Concomitant]
     Active Substance: ESCITALOPRAM OXALATE
     Indication: SEASONAL AFFECTIVE DISORDER
     Dates: start: 201303
  3. CALCIUM CITRATE [Concomitant]
     Active Substance: CALCIUM CITRATE
  4. INULIN [Concomitant]
     Active Substance: INULIN
  5. CURCUMA LONGA [Concomitant]
     Active Substance: TURMERIC
     Indication: CHRONIC LYMPHOCYTIC LEUKAEMIA
  6. PROBIOTIC [Concomitant]
     Active Substance: PROBIOTICS NOS
  7. FISH OIL [Concomitant]
     Active Substance: FISH OIL
     Dosage: WITH MEALS
  8. KELP [Concomitant]
     Active Substance: KELP
     Dosage: DAILY WITH MEALS
  9. SELENIUM [Concomitant]
     Active Substance: SELENIUM
  10. N-ACETYLCYSTEINE [Concomitant]
     Active Substance: ACETYLCYSTEINE
  11. RITUXAN [Concomitant]
     Active Substance: RITUXIMAB
     Indication: CHRONIC LYMPHOCYTIC LEUKAEMIA
     Route: 042
     Dates: start: 200601
  12. IMMUNOGLOBULIN HUMAN NORMAL [Concomitant]
     Active Substance: HUMAN IMMUNOGLOBULIN G
     Indication: HYPOGAMMAGLOBULINAEMIA
     Route: 042
     Dates: start: 201012
  13. ARMOUR THYROID [Concomitant]
     Active Substance: THYROID, PORCINE
     Indication: THYROID DISORDER
     Dates: start: 200210
  14. HYDROCORTISONE. [Concomitant]
     Active Substance: HYDROCORTISONE
     Indication: ADRENAL DISORDER
     Dates: start: 200210
  15. HYDROCORTISONE. [Concomitant]
     Active Substance: HYDROCORTISONE
     Indication: THYROID DISORDER
     Dates: start: 200210
  16. METHADONE [Concomitant]
     Active Substance: METHADONE HYDROCHLORIDE
     Indication: PAIN
     Dates: start: 2008
  17. CYPROHEPTADINE. [Concomitant]
     Active Substance: CYPROHEPTADINE
     Indication: HYPERHIDROSIS
     Dates: start: 201307
  18. CYCLOSPORINE. [Concomitant]
     Active Substance: CYCLOSPORINE
     Indication: AUTOIMMUNE HEPATITIS
  19. THIAMINE. [Concomitant]
     Active Substance: THIAMINE
     Indication: BLOOD COUNT
     Route: 051
  20. QUERCETIN [Concomitant]
     Active Substance: QUERCETIN
  21. TOCOTRIENOLS NOS [Concomitant]
  22. ALPHA LIPOIC ACID [Concomitant]
     Active Substance: .ALPHA.-LIPOIC ACID
     Dosage: WITH EACH MEAL
  23. HYDROCORTISONE. [Concomitant]
     Active Substance: HYDROCORTISONE
     Indication: THYROID DISORDER
  24. RESVERATROL [Concomitant]
     Active Substance: RESVERATROL
  25. CYANOCOBALAMIN. [Concomitant]
     Active Substance: CYANOCOBALAMIN
     Indication: BLOOD COUNT
     Route: 051
  26. FOLIC ACID. [Concomitant]
     Active Substance: FOLIC ACID
     Indication: BLOOD COUNT
     Route: 051
  27. VITAMIN K2 [Concomitant]
     Active Substance: MENAQUINONE 6
     Dosage: WITH BREAKFAST
  28. B-50 [Concomitant]
  29. PAPAYA. [Concomitant]
     Active Substance: PAPAYA
     Dosage: WITH EACH MEAL
  30. DOXYCLINE [Concomitant]
     Active Substance: DOXYCYCLINE
     Indication: INFECTION PROPHYLAXIS
  31. HYDROCORTISONE. [Concomitant]
     Active Substance: HYDROCORTISONE
     Indication: ADRENAL DISORDER
  32. UBIQUINOL [Concomitant]
     Active Substance: UBIQUINOL
  33. 5-HTP [Concomitant]
     Active Substance: OXITRIPTAN
     Dosage: QHS
  34. MELATONIN [Concomitant]
     Active Substance: MELATONIN
  35. IMBRUVICA [Suspect]
     Active Substance: IBRUTINIB
     Indication: CHRONIC LYMPHOCYTIC LEUKAEMIA
     Route: 065
     Dates: start: 20140304, end: 20141006
  36. DURAGESIC (ORPHENADRINE CITRATE/PARACETAMOL) [Concomitant]
     Indication: PAIN
     Dates: start: 2012
  37. ABSTRAL [Concomitant]
     Active Substance: FENTANYL CITRATE
     Indication: BREAKTHROUGH PAIN
     Dosage: AS NECESSARY
     Route: 060
  38. VITAMIN D3 [Concomitant]
     Active Substance: CHOLECALCIFEROL
     Indication: BLOOD COUNT
     Dosage: THROUGHOUT THE DAY WITH MEALS
     Route: 048
  39. TOCOPHEROL [Concomitant]
     Active Substance: TOCOPHEROL
  40. GINSENG [Concomitant]
     Active Substance: ASIAN GINSENG
  41. GRAPE SEED [Concomitant]
  42. PYRIDOXINE [Concomitant]
     Active Substance: PYRIDOXINE
     Indication: BLOOD COUNT
     Route: 051
  43. VITAMIN K1 [Concomitant]
     Active Substance: PHYTONADIONE
     Dosage: WITH BREAKFAST
  44. BROMELAIN [Concomitant]
     Active Substance: BROMELAINS
     Dosage: WITH EACH MEAL
  45. MANGANESE [Concomitant]
     Active Substance: MANGANESE\MANGANESE CHLORIDE
     Dosage: WITH EACH MEAL
  46. THREONINE [Concomitant]
  47. PREDNISONE. [Concomitant]
     Active Substance: PREDNISONE
     Dates: start: 201401, end: 20140830
  48. ALL OTHER THERAPEUTIC PRODUCTS [Concomitant]
     Active Substance: UNSPECIFIED INGREDIENT
  49. VITAMIN C WITH ROSE HIPS [Concomitant]
  50. EXTRACT GINGKO BILOBA [Concomitant]
     Dosage: WITH EACH MEAL

REACTIONS (4)
  - Blood alkaline phosphatase increased [Unknown]
  - Peripheral swelling [Not Recovered/Not Resolved]
  - Alanine aminotransferase increased [Unknown]
  - Localised infection [Recovered/Resolved]

NARRATIVE: CASE EVENT DATE: 201403
